FAERS Safety Report 22294070 (Version 3)
Quarter: 2023Q2

REPORT INFORMATION
  Report Type: Spontaneous
  Country: US (occurrence: US)
  Receive Date: 20230508
  Receipt Date: 20230620
  Transmission Date: 20230722
  Serious: Yes (Other)
  Sender: FDA-Public Use
  Company Number: US-PFIZER INC-202300178283

PATIENT
  Age: 69 Year
  Sex: Female
  Weight: 83.46 kg

DRUGS (2)
  1. SOMAVERT [Suspect]
     Active Substance: PEGVISOMANT
     Indication: Pituitary tumour removal
     Dosage: 30 MG, DAILY
     Dates: start: 2000
  2. SOMAVERT [Suspect]
     Active Substance: PEGVISOMANT
     Indication: Acromegaly

REACTIONS (5)
  - Laryngitis [Recovered/Resolved]
  - Sinus disorder [Recovered/Resolved]
  - Infection [Recovered/Resolved]
  - Speech disorder [Recovered/Resolved]
  - Nasopharyngitis [Recovered/Resolved]

NARRATIVE: CASE EVENT DATE: 20230429
